FAERS Safety Report 5145072-4 (Version None)
Quarter: 2006Q4

REPORT INFORMATION
  Report Type: 
  Country: None (occurrence: None)
  Receive Date: 20061107
  Receipt Date: 20060830
  Transmission Date: 20070319
  Serious: No
  Sender: FDA-Public Use
  Company Number: DE-BRISTOL-MYERS SQUIBB COMPANY-13494562

PATIENT
  Age: 50 Year
  Sex: Female
  Weight: 57 kg

DRUGS (8)
  1. PACLITAXEL [Suspect]
     Indication: BREAST CANCER
     Route: 042
     Dates: start: 20060726
  2. CYCLOPHOSPHAMIDE [Suspect]
     Indication: BREAST CANCER
     Route: 042
     Dates: start: 20060531, end: 20060712
  3. CAPECITABINE [Suspect]
     Indication: BREAST CANCER
     Route: 048
     Dates: start: 20060726
  4. EPIRUBICIN [Suspect]
     Indication: BREAST CANCER
     Route: 042
     Dates: start: 20060531, end: 20060712
  5. DEXAMETHASONE TAB [Concomitant]
     Route: 042
     Dates: start: 20060726
  6. RANITIDINE [Concomitant]
     Route: 042
     Dates: start: 20060726
  7. GRANISETRON [Concomitant]
     Route: 042
     Dates: start: 20060726
  8. CLEMASTINE FUMARATE [Concomitant]
     Route: 042
     Dates: start: 20060726

REACTIONS (1)
  - C-REACTIVE PROTEIN INCREASED [None]
